FAERS Safety Report 9713397 (Version 1)
Quarter: 2013Q4

REPORT INFORMATION
  Report Type: Report from Study
  Country: NL (occurrence: NL)
  Receive Date: 20131126
  Receipt Date: 20131126
  Transmission Date: 20140711
  Serious: Yes (Disabling)
  Sender: FDA-Public Use
  Company Number: NL-MYLANLABS-2013S1025999

PATIENT
  Age: 7 Decade
  Sex: Female

DRUGS (4)
  1. ALENDRONIC ACID [Suspect]
     Indication: OSTEOPOROSIS
     Route: 065
  2. ESTRIOL SUCCINATE [Concomitant]
     Indication: VULVOVAGINAL DRYNESS
     Dosage: 1 MG/G TWICE A WEEK
     Route: 067
  3. ZOPICLONE [Concomitant]
     Route: 065
  4. GLUCOSAMINE [Concomitant]
     Route: 065

REACTIONS (6)
  - Vision blurred [Recovering/Resolving]
  - Arthralgia [Unknown]
  - Bone pain [Unknown]
  - Myalgia [Unknown]
  - Palpitations [Unknown]
  - Headache [Unknown]
